FAERS Safety Report 8399656-0 (Version None)
Quarter: 2012Q2

REPORT INFORMATION
  Report Type: 
  Country: None (occurrence: None)
  Receive Date: 20120531
  Receipt Date: 20120523
  Transmission Date: 20120825
  Serious: Yes (Death)
  Sender: FDA-Public Use
  Company Number: US-JNJFOC-20120515808

PATIENT
  Sex: Female

DRUGS (2)
  1. IBUPROFEN [Suspect]
     Indication: PAIN
     Dosage: FOR 7 DAYS
     Route: 048
  2. PLACEBO [Suspect]
     Indication: PAIN
     Route: 050

REACTIONS (2)
  - THROMBOSIS [None]
  - OVARIAN CANCER METASTATIC [None]
